FAERS Safety Report 4663657-6 (Version None)
Quarter: 2005Q2

REPORT INFORMATION
  Report Type: 
  Country: None (occurrence: None)
  Receive Date: 20050513
  Receipt Date: 20050503
  Transmission Date: 20051028
  Serious: Yes (Hospitalization, Other)
  Sender: FDA-Public Use
  Company Number: HQWYE566605MAY05

PATIENT
  Age: 38 Year
  Sex: Female

DRUGS (2)
  1. ZOSYN [Suspect]
  2. LORAZEPAM [Suspect]
     Dosage: INTRAVENOUS
     Route: 042

REACTIONS (2)
  - ANAPHYLACTIC SHOCK [None]
  - NONSPECIFIC REACTION [None]
